FAERS Safety Report 6046110-7 (Version None)
Quarter: 2009Q1

REPORT INFORMATION
  Report Type: 
  Country: None (occurrence: None)
  Receive Date: 20090121
  Receipt Date: 20090121
  Transmission Date: 20090719
  Serious: Yes (Hospitalization)
  Sender: FDA-Public Use
  Company Number: None

PATIENT
  Age: 75 Year
  Sex: Male

DRUGS (1)
  1. WARFARIN SODIUM [Suspect]
     Indication: ATRIAL FIBRILLATION
     Dosage: 5 MG EVERY DAY PO
     Route: 048
     Dates: start: 20081216

REACTIONS (5)
  - BLOOD PRESSURE DECREASED [None]
  - INTERNATIONAL NORMALISED RATIO ABNORMAL [None]
  - LABORATORY TEST ABNORMAL [None]
  - STAPHYLOCOCCAL INFECTION [None]
  - UROSEPSIS [None]
